FAERS Safety Report 8614059-9 (Version None)
Quarter: 2012Q3

REPORT INFORMATION
  Report Type: 
  Country: None (occurrence: None)
  Receive Date: 20120823
  Receipt Date: 20120810
  Transmission Date: 20120928
  Serious: Yes (Life-Threatening, Hospitalization, Disabling)
  Sender: FDA-Public Use
  Company Number: US-MERCK-1208USA005879

PATIENT

DRUGS (2)
  1. ZOLINZA [Suspect]
     Indication: ACUTE LEUKAEMIA
     Dosage: 180 MG, DAILY FOR 1 WEEK ON AND 1 WEEK OFF
     Route: 048
  2. DECITABINE [Suspect]
     Indication: ACUTE LEUKAEMIA
     Dosage: 15 MG PER KG

REACTIONS (3)
  - CONVULSION [None]
  - BLOOD TEST ABNORMAL [None]
  - AMMONIA INCREASED [None]
